FAERS Safety Report 8114903-8 (Version None)
Quarter: 2012Q1

REPORT INFORMATION
  Report Type: 
  Country: None (occurrence: None)
  Receive Date: 20120206
  Receipt Date: 20111004
  Transmission Date: 20120608
  Serious: Yes (Other)
  Sender: FDA-Public Use
  Company Number: CA-JNJFOC-20120105832

PATIENT
  Sex: Male
  Weight: 63.05 kg

DRUGS (1)
  1. REMICADE [Suspect]
     Indication: CROHN'S DISEASE
     Dosage: 4 VIALS
     Route: 042

REACTIONS (6)
  - DECREASED APPETITE [None]
  - PYREXIA [None]
  - ABDOMINAL PAIN UPPER [None]
  - ARTHRITIS [None]
  - VOMITING [None]
  - MALAISE [None]
